FAERS Safety Report 5583852-1 (Version None)
Quarter: 2008Q1

REPORT INFORMATION
  Report Type: 
  Country: None (occurrence: None)
  Receive Date: 20080102
  Receipt Date: 20080102
  Transmission Date: 20080703
  Serious: Yes (Other)
  Sender: FDA-Public Use
  Company Number: None

PATIENT
  Age: 27 Year
  Sex: Female
  Weight: 52.1637 kg

DRUGS (1)
  1. CHANTIX [Suspect]
     Indication: SMOKING CESSATION THERAPY
     Dosage: 0.5 MG 1 PILL  1/2 TIMES A DAY PO : 1.0 MG PILL 1/2 TIMES A DAY PO
     Route: 048
     Dates: start: 20071005, end: 20071019

REACTIONS (8)
  - ASTHENIA [None]
  - COLD SWEAT [None]
  - DEPRESSED MOOD [None]
  - DEPRESSION [None]
  - EUPHORIC MOOD [None]
  - MOOD ALTERED [None]
  - POOR QUALITY SLEEP [None]
  - SLEEP TERROR [None]
